FAERS Safety Report 23517464 (Version 1)
Quarter: 2024Q1

REPORT INFORMATION
  Report Type: Spontaneous
  Country: US (occurrence: None)
  Receive Date: 20240212
  Receipt Date: 20240212
  Transmission Date: 20240409
  Serious: Yes (Hospitalization)
  Sender: FDA-Public Use
  Company Number: None

PATIENT
  Age: 51 Year
  Sex: Female

DRUGS (1)
  1. HUMIRA [Suspect]
     Active Substance: ADALIMUMAB
     Indication: Ankylosing spondylitis
     Dosage: FREQUENCY : EVERY OTHER WEEK;?

REACTIONS (9)
  - Abdominal panniculectomy [None]
  - Sleep disorder [None]
  - Photosensitivity reaction [None]
  - Nausea [None]
  - Vomiting [None]
  - Pulmonary oedema [None]
  - Pneumonia [None]
  - Eosinophilic gastritis [None]
  - Product dose omission issue [None]
